FAERS Safety Report 16479645 (Version 1)
Quarter: 2019Q2

REPORT INFORMATION
  Report Type: Spontaneous
  Country: AU (occurrence: AU)
  Receive Date: 20190626
  Receipt Date: 20190626
  Transmission Date: 20190711
  Serious: Yes (Other)
  Sender: FDA-Public Use
  Company Number: AU-BRISTOL-MYERS SQUIBB COMPANY-BMS-2019-062121

PATIENT
  Age: 33 Year
  Sex: Male

DRUGS (1)
  1. ELIQUIS [Suspect]
     Active Substance: APIXABAN
     Indication: PULMONARY EMBOLISM
     Dosage: UNK
     Route: 048
     Dates: start: 20190420, end: 20190425

REACTIONS (9)
  - Abdominal pain [Unknown]
  - Urticaria [Recovered/Resolved]
  - Respiratory distress [Recovered/Resolved]
  - Dyspnoea [Recovered/Resolved]
  - Constipation [Unknown]
  - Pharyngeal swelling [Unknown]
  - Nausea [Unknown]
  - Erythema [Recovering/Resolving]
  - Pruritus generalised [Unknown]

NARRATIVE: CASE EVENT DATE: 20190426
